FAERS Safety Report 5366353-5 (Version None)
Quarter: 2007Q2

REPORT INFORMATION
  Report Type: 
  Country: None (occurrence: None)
  Receive Date: 20070620
  Receipt Date: 20070620
  Transmission Date: 20071010
  Serious: Yes (Other)
  Sender: FDA-Public Use
  Company Number: None

PATIENT
  Age: 3 Year
  Sex: Female

DRUGS (1)
  1. COPPERTONE KIDS, SPF 50 [Suspect]
     Indication: DRUG USE FOR UNKNOWN INDICATION
     Dosage: ONCE;TOP
     Route: 061

REACTIONS (3)
  - ANAPHYLACTIC SHOCK [None]
  - EYE IRRITATION [None]
  - MILK ALLERGY [None]
